FAERS Safety Report 9200053 (Version 1)
Quarter: 2013Q1

REPORT INFORMATION
  Report Type: Spontaneous
  Country: FR (occurrence: FR)
  Receive Date: 20130329
  Receipt Date: 20130329
  Transmission Date: 20140127
  Serious: Yes (Life-Threatening, Hospitalization)
  Sender: FDA-Public Use
  Company Number: FR-PFIZER INC-2013099920

PATIENT
  Age: 84 Year
  Sex: Female

DRUGS (6)
  1. LYRICA [Suspect]
     Dosage: UNK
     Route: 048
     Dates: end: 20130304
  2. OMEPRAZOLE [Suspect]
     Dosage: UNK
     Route: 048
     Dates: start: 2011, end: 20130304
  3. LAROXYL [Suspect]
     Dosage: UNK
     Route: 048
     Dates: end: 20130304
  4. LUMIRELAX [Suspect]
     Dosage: UNK
     Route: 048
     Dates: end: 20130304
  5. IDEOS [Suspect]
     Dosage: UNK
     Route: 048
     Dates: end: 20130304
  6. SERESTA [Concomitant]

REACTIONS (1)
  - Inappropriate antidiuretic hormone secretion [Recovered/Resolved]
